FAERS Safety Report 14296789 (Version 2)
Quarter: 2018Q1

REPORT INFORMATION
  Report Type: Report from Study
  Country: BR (occurrence: BR)
  Receive Date: 20171218
  Receipt Date: 20180205
  Transmission Date: 20180509
  Serious: Yes (Death, Hospitalization, Other)
  Sender: FDA-Public Use
  Company Number: BR-BAYER-2017-237391

PATIENT
  Age: 69 Year
  Sex: Male

DRUGS (1)
  1. NEXAVAR [Suspect]
     Active Substance: SORAFENIB
     Indication: HEPATOCELLULAR CARCINOMA
     Dosage: 800 MG, DAILY
     Dates: start: 20171124, end: 20180108

REACTIONS (12)
  - Enterocolitis infectious [None]
  - Hypotension [None]
  - Diarrhoea [None]
  - Hepatic failure [Fatal]
  - Drug ineffective [None]
  - Gait inability [None]
  - Jaundice [Fatal]
  - Dehydration [None]
  - Asthenia [None]
  - Weight decreased [Not Recovered/Not Resolved]
  - Diarrhoea [Not Recovered/Not Resolved]
  - Hepatic cancer [Fatal]

NARRATIVE: CASE EVENT DATE: 20171127
